FAERS Safety Report 9342574 (Version 1)
Quarter: 2013Q2

REPORT INFORMATION
  Report Type: Report from Study
  Country: US (occurrence: US)
  Receive Date: 20130611
  Receipt Date: 20130611
  Transmission Date: 20140414
  Serious: Yes (Hospitalization)
  Sender: FDA-Public Use
  Company Number: US-ABBOTT-13P-163-1099421-00

PATIENT
  Age: 36 Year
  Sex: Male

DRUGS (9)
  1. HUMIRA [Suspect]
     Indication: CROHN^S DISEASE
     Route: 058
     Dates: end: 2009
  2. HUMIRA [Suspect]
     Dosage: TWO INJECTIONS
     Route: 058
     Dates: start: 2009, end: 2012
  3. HUMIRA [Suspect]
     Route: 058
     Dates: start: 2012
  4. ASACOL [Concomitant]
     Indication: CROHN^S DISEASE
  5. 6-MP [Concomitant]
     Indication: CROHN^S DISEASE
  6. BUDESENIDE [Concomitant]
     Indication: CROHN^S DISEASE
     Dosage: ORAL
  7. ENTOCORT [Concomitant]
     Indication: CROHN^S DISEASE
  8. ZEGERID [Concomitant]
     Indication: GASTROOESOPHAGEAL REFLUX DISEASE
  9. NEXIUM [Concomitant]
     Indication: GASTROOESOPHAGEAL REFLUX DISEASE

REACTIONS (8)
  - Haematochezia [Recovered/Resolved]
  - Crohn^s disease [Recovering/Resolving]
  - Abdominal pain [Recovered/Resolved]
  - Gastrointestinal infection [Unknown]
  - Diarrhoea [Not Recovered/Not Resolved]
  - Defaecation urgency [Not Recovered/Not Resolved]
  - Vomiting [Recovered/Resolved]
  - Aphagia [Recovered/Resolved]
